FAERS Safety Report 5790830-6 (Version None)
Quarter: 2008Q2

REPORT INFORMATION
  Report Type: 
  Country: None (occurrence: None)
  Receive Date: 20080626
  Receipt Date: 20080507
  Transmission Date: 20081010
  Serious: No
  Sender: FDA-Public Use
  Company Number: A0726705A

PATIENT
  Age: 40 Year
  Sex: Female
  Weight: 53 kg

DRUGS (4)
  1. ALLI [Suspect]
  2. ADDERALL 10 [Concomitant]
  3. ESTROGENIC SUBSTANCE [Concomitant]
  4. MULTI-VITAMIN [Concomitant]

REACTIONS (8)
  - CONSTIPATION [None]
  - FAECAL VOLUME DECREASED [None]
  - FAECES HARD [None]
  - FREQUENT BOWEL MOVEMENTS [None]
  - INTENTIONAL DRUG MISUSE [None]
  - INTESTINAL FUNCTIONAL DISORDER [None]
  - PHARMACEUTICAL PRODUCT COMPLAINT [None]
  - RECTAL DISCHARGE [None]
